FAERS Safety Report 7363230-5 (Version None)
Quarter: 2011Q1

REPORT INFORMATION
  Report Type: 
  Country: None (occurrence: None)
  Receive Date: 20110309
  Receipt Date: 20110228
  Transmission Date: 20110831
  Serious: Yes (Other)
  Sender: FDA-Public Use
  Company Number: 2006US002767

PATIENT
  Age: 61 Year
  Sex: Female
  Weight: 52 kg

DRUGS (8)
  1. PRAVACHOL [Concomitant]
  2. ASPIRIN [Concomitant]
  3. AMEVIVE [Suspect]
     Indication: PSORIASIS
     Dosage: 15 MG, WEEKLY, INTRAMUSCULAR ; 15 MG, WEEKLY, INTRAMUSCULAR
     Route: 030
     Dates: start: 20060221, end: 20060504
  4. AMEVIVE [Suspect]
     Indication: PSORIASIS
     Dosage: 15 MG, WEEKLY, INTRAMUSCULAR ; 15 MG, WEEKLY, INTRAMUSCULAR
     Route: 030
     Dates: start: 20070604, end: 20070926
  5. BONIVA [Concomitant]
  6. CALCIUM (CALCIUM) [Concomitant]
  7. OMEGA III (DOCOSAHEXANOIC ACID, EICOSAPENTAENOIC ACID, TOCOPHERYL ACET [Concomitant]
  8. CENTRUM SILVER (VITAMINS NOS) [Concomitant]

REACTIONS (1)
  - SALIVARY GLAND NEOPLASM [None]
